FAERS Safety Report 11714333 (Version 1)
Quarter: 2015Q4

REPORT INFORMATION
  Report Type: Spontaneous
  Country: US (occurrence: None)
  Receive Date: 20151106
  Receipt Date: 20151106
  Transmission Date: 20160304
  Serious: Yes (Life-Threatening, Hospitalization)
  Sender: FDA-Public Use
  Company Number: None

PATIENT
  Age: 81 Year
  Sex: Male
  Weight: 75.2 kg

DRUGS (1)
  1. HYDROCHLOROTHIAZIDE. [Suspect]
     Active Substance: HYDROCHLOROTHIAZIDE
     Dosage: MG PO
     Route: 048
     Dates: start: 20120211, end: 20120407

REACTIONS (2)
  - Atrioventricular block [None]
  - Hyponatraemia [None]

NARRATIVE: CASE EVENT DATE: 20120407
